FAERS Safety Report 20865461 (Version 1)
Quarter: 2022Q2

REPORT INFORMATION
  Report Type: Report from Study
  Country: US (occurrence: US)
  Receive Date: 20220524
  Receipt Date: 20220524
  Transmission Date: 20220721
  Serious: Yes (Other)
  Sender: FDA-Public Use
  Company Number: US-ABBVIE-22K-163-4223065-00

PATIENT
  Sex: Male

DRUGS (2)
  1. HUMIRA [Suspect]
     Active Substance: ADALIMUMAB
     Indication: Psoriasis
     Dosage: CITRATE FREE
     Route: 058
  2. HUMIRA [Suspect]
     Active Substance: ADALIMUMAB
     Indication: Colitis ulcerative

REACTIONS (8)
  - Dizziness [Recovering/Resolving]
  - Temperature intolerance [Recovering/Resolving]
  - Anaemia [Recovering/Resolving]
  - Photosensitivity reaction [Recovering/Resolving]
  - Colitis [Unknown]
  - Poor quality sleep [Unknown]
  - Blood iron decreased [Not Recovered/Not Resolved]
  - Stress [Not Recovered/Not Resolved]

NARRATIVE: CASE EVENT DATE: 20220101
